FAERS Safety Report 14714265 (Version 3)
Quarter: 2018Q2

REPORT INFORMATION
  Report Type: Spontaneous
  Country: AU (occurrence: AU)
  Receive Date: 20180404
  Receipt Date: 20180613
  Transmission Date: 20180711
  Serious: Yes (Other)
  Sender: FDA-Public Use
  Company Number: AU-GLAXOSMITHKLINE-AU2018GSK035159

PATIENT
  Age: 9 Year
  Sex: Male

DRUGS (2)
  1. ASMOL (SALBUTAMOL SULFATE) [Suspect]
     Active Substance: ALBUTEROL SULFATE
     Indication: PRODUCT USED FOR UNKNOWN INDICATION
     Dosage: UNK
  2. ASMOL (SALBUTAMOL SULFATE) [Suspect]
     Active Substance: ALBUTEROL SULFATE
     Dosage: UNK

REACTIONS (3)
  - Pain in extremity [Recovered/Resolved]
  - Product quality issue [Unknown]
  - Product package associated injury [Recovered/Resolved]
